FAERS Safety Report 8597491-1 (Version None)
Quarter: 2012Q3

REPORT INFORMATION
  Report Type: 
  Country: None (occurrence: None)
  Receive Date: 20120802
  Receipt Date: 20120730
  Transmission Date: 20120928
  Serious: Yes (Death, Hospitalization)
  Sender: FDA-Public Use
  Company Number: NES-AE-12-008

PATIENT
  Age: 67 Year
  Sex: Male
  Weight: 89 kg

DRUGS (11)
  1. ZOCOR [Suspect]
     Indication: HYPERLIPIDAEMIA
     Dosage: 40 MG - QD
     Dates: end: 20111105
  2. COREG [Suspect]
     Indication: HYPERTENSION
     Dates: end: 20111010
  3. POTASSIUM CHLORIDE [Suspect]
     Indication: NUTRITIONAL SUPPORT
     Dosage: 20MEQ - QD
     Dates: end: 20111105
  4. CRIZOTINIB [Suspect]
     Indication: NON-SMALL CELL LUNG CANCER
     Dosage: 250MG - BID - ORAL
     Route: 048
     Dates: start: 20110603, end: 20111024
  5. LEVOTHYROXINE SODIUM [Suspect]
     Indication: HYPOTHYROIDISM
     Dosage: 50MCG - QD
     Dates: end: 20111105
  6. LASIX [Suspect]
     Indication: HYPERTENSION
     Dates: end: 20111105
  7. BENZONATATE [Suspect]
     Indication: COUGH
     Dates: end: 20111105
  8. ZETIA [Suspect]
     Indication: HYPERLIPIDAEMIA
     Dosage: 10 MG - QD
     Dates: end: 20111105
  9. ASPIRIN [Suspect]
     Indication: PROPHYLAXIS
     Dates: end: 20111105
  10. ASPIRIN [Suspect]
     Indication: CORONARY ARTERY DISEASE
     Dates: end: 20111105
  11. FLUZONE [Suspect]
     Indication: INFLUENZA IMMUNISATION
     Dosage: DF - SUBCUTANEOUS
     Route: 058
     Dates: start: 20111005, end: 20111005

REACTIONS (37)
  - LOSS OF CONSCIOUSNESS [None]
  - ATAXIA [None]
  - SPLENIC HAEMATOMA [None]
  - LEFT VENTRICULAR DYSFUNCTION [None]
  - METASTASES TO PANCREAS [None]
  - NAUSEA [None]
  - DYSPNOEA [None]
  - DIASTOLIC DYSFUNCTION [None]
  - METASTASES TO SPLEEN [None]
  - HAEMOGLOBIN DECREASED [None]
  - LEFT ATRIAL DILATATION [None]
  - HAEMORRHAGE [None]
  - PANCREATIC MASS [None]
  - BLOOD POTASSIUM DECREASED [None]
  - PLATELET COUNT DECREASED [None]
  - OEDEMA PERIPHERAL [None]
  - SYNCOPE [None]
  - CONSTIPATION [None]
  - PULMONARY VALVE INCOMPETENCE [None]
  - LOCALISED INTRAABDOMINAL FLUID COLLECTION [None]
  - BLOOD ALBUMIN DECREASED [None]
  - ORTHOSTATIC HYPOTENSION [None]
  - NEUROPATHY PERIPHERAL [None]
  - PLEURAL EFFUSION [None]
  - LUNG CONSOLIDATION [None]
  - ABDOMINAL PAIN [None]
  - FALL [None]
  - ILEUS [None]
  - ABDOMINAL DISTENSION [None]
  - FLUID RETENTION [None]
  - FATIGUE [None]
  - LIVEDO RETICULARIS [None]
  - BALANCE DISORDER [None]
  - ATELECTASIS [None]
  - MITRAL VALVE INCOMPETENCE [None]
  - PROCEDURAL PAIN [None]
  - PANCREATIC PSEUDOCYST [None]
